FAERS Safety Report 24809504 (Version 1)
Quarter: 2025Q1

REPORT INFORMATION
  Report Type: Report from Study
  Country: US (occurrence: US)
  Receive Date: 20250106
  Receipt Date: 20250106
  Transmission Date: 20250409
  Serious: Yes (Other)
  Sender: AUROBINDO
  Company Number: US-AUROBINDO-AUR-APL-2024-064539

PATIENT
  Age: 43 Year
  Sex: Male

DRUGS (2)
  1. AZACITIDINE [Suspect]
     Active Substance: AZACITIDINE
     Indication: Angioimmunoblastic T-cell lymphoma
     Route: 065
  2. ROMIDEPSIN [Suspect]
     Active Substance: ROMIDEPSIN
     Indication: Angioimmunoblastic T-cell lymphoma
     Route: 065

REACTIONS (1)
  - Therapy partial responder [Unknown]
